FAERS Safety Report 5333243-3 (Version None)
Quarter: 2007Q2

REPORT INFORMATION
  Report Type: 
  Country: None (occurrence: None)
  Receive Date: 20070521
  Receipt Date: 20070521
  Transmission Date: 20071010
  Serious: Yes (Hospitalization)
  Sender: FDA-Public Use
  Company Number: None

PATIENT
  Sex: Female
  Weight: 50.8 kg

DRUGS (2)
  1. CISPLATIN [Suspect]
     Dosage: 296.5 MG
  2. TAXOL [Suspect]
     Dosage: 799.75 MG

REACTIONS (8)
  - DISEASE RECURRENCE [None]
  - HYDRONEPHROSIS [None]
  - INFUSION SITE ERYTHEMA [None]
  - INFUSION SITE EXTRAVASATION [None]
  - INFUSION SITE SWELLING [None]
  - RENAL IMPAIRMENT [None]
  - SCAR [None]
  - SURGICAL FAILURE [None]
